FAERS Safety Report 24445217 (Version 1)
Quarter: 2024Q4

REPORT INFORMATION
  Report Type: Spontaneous
  Country: CN (occurrence: CN)
  Receive Date: 20241016
  Receipt Date: 20241016
  Transmission Date: 20250114
  Serious: Yes (Life-Threatening, Other)
  Sender: BAYER HEALTHCARE PHARMACEUTICALS INC.
  Company Number: CN-BAYER-2024A146908

PATIENT
  Age: 37 Year
  Sex: Male

DRUGS (1)
  1. ULTRAVIST [Suspect]
     Active Substance: IOPROMIDE
     Indication: Computerised tomogram
     Dosage: 50 ML, ONCE
     Route: 041
     Dates: start: 20241011, end: 20241011

REACTIONS (12)
  - Anaphylactic shock [Recovering/Resolving]
  - Blood pressure decreased [Recovering/Resolving]
  - Heart rate increased [None]
  - Oxygen saturation decreased [Recovered/Resolved]
  - Electrocardiogram T wave peaked [None]
  - Tachypnoea [None]
  - Palpitations [None]
  - Vision blurred [None]
  - Erythema [None]
  - Hypoaesthesia [None]
  - Neurological examination abnormal [None]
  - Eyelid oedema [None]

NARRATIVE: CASE EVENT DATE: 20241011
